FAERS Safety Report 10531954 (Version 1)
Quarter: 2014Q4

REPORT INFORMATION
  Report Type: Spontaneous
  Country: US (occurrence: US)
  Receive Date: 20141021
  Receipt Date: 20141021
  Transmission Date: 20150529
  Serious: No
  Sender: FDA-Public Use
  Company Number: US-PURDUE-USA-2014-0113714

PATIENT
  Sex: Female

DRUGS (5)
  1. OXYCONTIN [Suspect]
     Active Substance: OXYCODONE HYDROCHLORIDE
     Indication: INTERVERTEBRAL DISC DEGENERATION
  2. OXYCONTIN [Suspect]
     Active Substance: OXYCODONE HYDROCHLORIDE
     Indication: FIBROMYALGIA
  3. OXYCONTIN [Suspect]
     Active Substance: OXYCODONE HYDROCHLORIDE
     Indication: OSTEOARTHRITIS
  4. OXYCONTIN [Suspect]
     Active Substance: OXYCODONE HYDROCHLORIDE
     Indication: SPINAL COLUMN STENOSIS
  5. OXYCONTIN [Suspect]
     Active Substance: OXYCODONE HYDROCHLORIDE
     Indication: OSTEOARTHRITIS
     Dosage: 40 MG, TID
     Route: 048

REACTIONS (11)
  - Drug withdrawal syndrome [Unknown]
  - Pain [Unknown]
  - Depressed mood [Unknown]
  - Fatigue [Unknown]
  - Restless legs syndrome [Unknown]
  - Inadequate analgesia [Unknown]
  - Headache [Unknown]
  - Breakthrough pain [Unknown]
  - Drug effect decreased [Unknown]
  - Abdominal pain upper [Unknown]
  - Insomnia [Unknown]
